FAERS Safety Report 9864201 (Version 2)
Quarter: 2014Q2

REPORT INFORMATION
  Report Type: Spontaneous
  Country: US (occurrence: US)
  Receive Date: 20140203
  Receipt Date: 20140501
  Transmission Date: 20141212
  Serious: No
  Sender: FDA-Public Use
  Company Number: US-AMGEN-USASP2014000565

PATIENT
  Age: 44 Year
  Sex: Female
  Weight: 97.51 kg

DRUGS (2)
  1. ENBREL [Suspect]
     Indication: PRODUCT USED FOR UNKNOWN INDICATION
     Dosage: 50 MG, 2 TIMES/WK
     Route: 065
     Dates: start: 20130218
  2. METHOTREXATE [Concomitant]
     Dosage: 15 MG, QWK
     Dates: start: 2012, end: 201311

REACTIONS (6)
  - Musculoskeletal pain [Not Recovered/Not Resolved]
  - Arthritis [Not Recovered/Not Resolved]
  - Local swelling [Not Recovered/Not Resolved]
  - Pain in extremity [Not Recovered/Not Resolved]
  - Injection site reaction [Recovering/Resolving]
  - Nasopharyngitis [Not Recovered/Not Resolved]
